FAERS Safety Report 5581627-0 (Version None)
Quarter: 2008Q1

REPORT INFORMATION
  Report Type: 
  Country: None (occurrence: None)
  Receive Date: 20080102
  Receipt Date: 20080102
  Transmission Date: 20080703
  Serious: Yes (Hospitalization)
  Sender: FDA-Public Use
  Company Number: None

PATIENT
  Age: 60 Year
  Sex: Male

DRUGS (3)
  1. LISINOPRIL [Suspect]
     Indication: DIABETES MELLITUS
     Dosage: 40 EVERY DAY PO
     Route: 048
     Dates: start: 20070124, end: 20070807
  2. LISINOPRIL [Suspect]
     Indication: RENAL FAILURE CHRONIC
     Dosage: 40 EVERY DAY PO
     Route: 048
     Dates: start: 20070124, end: 20070807
  3. LOSARTAN POTASSIUM [Suspect]
     Dosage: 100MG EVERY DAY PO
     Route: 048
     Dates: start: 20051116, end: 20070807

REACTIONS (1)
  - HYPERKALAEMIA [None]
